FAERS Safety Report 6304675-1 (Version None)
Quarter: 2009Q3

REPORT INFORMATION
  Report Type: 
  Country: None (occurrence: None)
  Receive Date: 20090811
  Receipt Date: 20090804
  Transmission Date: 20100115
  Serious: Yes (Hospitalization)
  Sender: FDA-Public Use
  Company Number: ES-WYE-G04181609

PATIENT
  Age: 70 Year
  Sex: Female

DRUGS (6)
  1. RAPAMUNE [Suspect]
     Indication: PROPHYLAXIS AGAINST TRANSPLANT REJECTION
     Dosage: UNKNOWN DOSE DAILY
     Route: 048
     Dates: start: 20040615, end: 20090210
  2. SEGURIL [Concomitant]
     Dosage: UNKNOWN DOSE DAILY
     Route: 048
     Dates: start: 20070712, end: 20090220
  3. ALDACTONE [Concomitant]
     Dosage: UNKNOWN
     Route: 048
     Dates: start: 20040722, end: 20090206
  4. CARDURA [Concomitant]
     Dosage: UNKNOWN DOSE DAILY
     Route: 048
     Dates: start: 20040816, end: 20081113
  5. CELLCEPT [Interacting]
     Indication: PROPHYLAXIS AGAINST TRANSPLANT REJECTION
     Dosage: UNKNOWN DOSE DAILY
     Route: 048
     Dates: start: 20040610
  6. PREDNISONE [Interacting]
     Indication: PROPHYLAXIS AGAINST TRANSPLANT REJECTION
     Dosage: UNKNOWN DOSE DAILY
     Route: 048
     Dates: start: 20040626, end: 20090210

REACTIONS (2)
  - DRUG INTERACTION [None]
  - PULMONARY TUBERCULOSIS [None]
